FAERS Safety Report 7745869-8 (Version None)
Quarter: 2011Q3

REPORT INFORMATION
  Report Type: 
  Country: None (occurrence: None)
  Receive Date: 20110908
  Receipt Date: 20110831
  Transmission Date: 20111222
  Serious: Yes (Life-Threatening)
  Sender: FDA-Public Use
  Company Number: 998223

PATIENT
  Age: 71 Year
  Sex: Female

DRUGS (13)
  1. PACLITAXEL [Suspect]
     Indication: PRODUCT USED FOR UNKNOWN INDICATION
     Dosage: 141 MG MILLIGRAM(S), INTRAVENOUS
     Route: 042
     Dates: start: 20110421, end: 20110505
  2. DEXTROSE [Concomitant]
  3. ATARAX [Concomitant]
  4. LANSOPRAZOLE [Concomitant]
  5. LEVOTHYROXINE SODIUM [Concomitant]
  6. SOLU-MEDROL [Concomitant]
  7. CARBOPLATIN [Concomitant]
  8. (SERETIDE DISCUS) [Concomitant]
  9. (IMOVANE) [Concomitant]
  10. (AERIUS /01398501/) [Concomitant]
  11. ZANTAC [Concomitant]
  12. LASIX [Concomitant]
  13. (DALFAGAN CODEINE) [Concomitant]

REACTIONS (7)
  - ANAPHYLACTOID SHOCK [None]
  - CARDIO-RESPIRATORY ARREST [None]
  - INFUSION RELATED REACTION [None]
  - ACUTE RESPIRATORY DISTRESS SYNDROME [None]
  - OXYGEN SATURATION DECREASED [None]
  - BLOOD PRESSURE SYSTOLIC INCREASED [None]
  - SHOCK [None]
